FAERS Safety Report 8809604 (Version 3)
Quarter: 2013Q2

REPORT INFORMATION
  Report Type: Spontaneous
  Country: NO (occurrence: NO)
  Receive Date: 20120926
  Receipt Date: 20130403
  Transmission Date: 20140414
  Serious: Yes (Other)
  Sender: FDA-Public Use
  Company Number: PHHY2012NO080657

PATIENT
  Sex: Female

DRUGS (11)
  1. TACROLIMUS [Suspect]
     Indication: GRANULOMATOSIS WITH POLYANGIITIS
  2. EVEROLIMUS [Suspect]
     Indication: GRANULOMATOSIS WITH POLYANGIITIS
  3. METHOTREXATE [Suspect]
     Indication: GRANULOMATOSIS WITH POLYANGIITIS
  4. METHOTREXATE [Suspect]
     Indication: OFF LABEL USE
  5. AZATHIOPRINE [Suspect]
     Indication: GRANULOMATOSIS WITH POLYANGIITIS
  6. CYCLOPHOSPHAMIDE [Suspect]
     Indication: GRANULOMATOSIS WITH POLYANGIITIS
     Dosage: 24 MG
  7. RITUXIMAB [Suspect]
     Indication: RHEUMATOID ARTHRITIS
     Dosage: 2000 MG, TWO INFUSIONS OF 1000 MG, 2 WEEKS APART
     Dates: start: 200611
  8. RITUXIMAB [Suspect]
     Indication: GRANULOMATOSIS WITH POLYANGIITIS
     Dosage: 4000 MG
     Dates: end: 200611
  9. MYCOPHENOLATE MOFETIL [Concomitant]
  10. IMMUNOGLOBULINS [Concomitant]
     Dosage: UNK
     Route: 042
  11. PREDNISOLONE [Concomitant]
     Dosage: 0-15 MG DAILY (VARYING DOSE)

REACTIONS (4)
  - Colitis [Unknown]
  - Neutropenia [Recovered/Resolved]
  - Oral candidiasis [Unknown]
  - Pyrexia [Unknown]
